FAERS Safety Report 10215323 (Version 1)
Quarter: 2014Q2

REPORT INFORMATION
  Report Type: Spontaneous
  Country: PT (occurrence: PT)
  Receive Date: 20140603
  Receipt Date: 20140603
  Transmission Date: 20141212
  Serious: Yes (Other)
  Sender: FDA-Public Use
  Company Number: PHHY2014PT065152

PATIENT
  Age: 32 Year
  Sex: Male

DRUGS (1)
  1. VALPROIC ACID [Suspect]
     Indication: EPILEPSY

REACTIONS (8)
  - Tuberous sclerosis [Unknown]
  - Renal cyst [Unknown]
  - Angiofibroma [Unknown]
  - Fibroma [Unknown]
  - Nodule [Unknown]
  - Angiomyolipoma [Unknown]
  - Convulsion [Unknown]
  - Drug abuse [Unknown]
